FAERS Safety Report 22203475 (Version 1)
Quarter: 2023Q2

REPORT INFORMATION
  Report Type: Spontaneous
  Country: US (occurrence: None)
  Receive Date: 20230412
  Receipt Date: 20230412
  Transmission Date: 20230722
  Serious: Yes (Other)
  Sender: FDA-Public Use
  Company Number: None

PATIENT
  Age: 18 Year
  Sex: Male
  Weight: 74.25 kg

DRUGS (3)
  1. METHYLPHENIDATE HYDROCHLORIDE [Suspect]
     Active Substance: METHYLPHENIDATE HYDROCHLORIDE
     Indication: Attention deficit hyperactivity disorder
     Dosage: OTHER QUANTITY : 1 TABLET(S);?
     Route: 048
     Dates: start: 20230307, end: 20230412
  2. CONCERTA [Concomitant]
  3. ALBUTEROL [Concomitant]
     Active Substance: ALBUTEROL

REACTIONS (8)
  - Product substitution issue [None]
  - Therapeutic response changed [None]
  - Drug ineffective [None]
  - Memory impairment [None]
  - Road traffic accident [None]
  - Appetite disorder [None]
  - Product formulation issue [None]
  - Product supply issue [None]

NARRATIVE: CASE EVENT DATE: 20230412
